FAERS Safety Report 17084712 (Version 2)
Quarter: 2019Q4

REPORT INFORMATION
  Report Type: Report from Study
  Country: US (occurrence: US)
  Receive Date: 20191127
  Receipt Date: 20191219
  Transmission Date: 20200122
  Serious: Yes (Other)
  Sender: FDA-Public Use
  Company Number: NVSC2019US046444

PATIENT
  Age: 48 Year
  Sex: Female

DRUGS (1)
  1. COSENTYX [Suspect]
     Active Substance: SECUKINUMAB
     Indication: ANKYLOSING SPONDYLITIS
     Dosage: 150 MG, Q4W
     Route: 058
     Dates: start: 20190628

REACTIONS (6)
  - Glycosylated haemoglobin increased [Unknown]
  - Drug ineffective [Unknown]
  - Weight increased [Unknown]
  - Musculoskeletal stiffness [Unknown]
  - Ankylosing spondylitis [Unknown]
  - Pain [Unknown]
